FAERS Safety Report 17014483 (Version 2)
Quarter: 2019Q4

REPORT INFORMATION
  Report Type: Spontaneous
  Country: US (occurrence: US)
  Receive Date: 20191111
  Receipt Date: 20191115
  Transmission Date: 20200122
  Serious: Yes (Hospitalization)
  Sender: FDA-Public Use
  Company Number: US-STRIDES ARCOLAB LIMITED-2019SP011175

PATIENT
  Age: 74 Year
  Sex: Male

DRUGS (1)
  1. HYDRALAZINE HCL [Suspect]
     Active Substance: HYDRALAZINE HYDROCHLORIDE
     Indication: HYPERTENSION
     Dosage: UNK
     Route: 065

REACTIONS (13)
  - Lung opacity [Unknown]
  - Condition aggravated [Unknown]
  - Pulmonary alveolar haemorrhage [Unknown]
  - Haematuria [Unknown]
  - Anti-neutrophil cytoplasmic antibody positive vasculitis [Unknown]
  - Proteinuria [Unknown]
  - Tubulointerstitial nephritis [Unknown]
  - Malaise [Unknown]
  - Oedema peripheral [Unknown]
  - Ecchymosis [Unknown]
  - Renal impairment [Unknown]
  - Pancytopenia [Not Recovered/Not Resolved]
  - Haemoptysis [Unknown]
